FAERS Safety Report 14023756 (Version 1)
Quarter: 2017Q3

REPORT INFORMATION
  Report Type: Spontaneous
  Country: US (occurrence: US)
  Receive Date: 20170929
  Receipt Date: 20170929
  Transmission Date: 20171128
  Serious: No
  Sender: FDA-Public Use
  Company Number: US-UPSHER-SMITH LABORATORIES, INC.-17000037

PATIENT
  Age: 63 Year
  Sex: Female

DRUGS (3)
  1. KLOR-CON M [Suspect]
     Active Substance: POTASSIUM CHLORIDE
     Indication: POTASSIUM WASTING NEPHROPATHY
     Dosage: 80 MEQ, BID
     Route: 048
     Dates: start: 2009
  2. NEXIUM [Concomitant]
     Active Substance: ESOMEPRAZOLE MAGNESIUM
     Indication: REFLUX GASTRITIS
     Dosage: UNK
  3. MAGNESIUM [Concomitant]
     Active Substance: MAGNESIUM
     Dosage: UNK

REACTIONS (7)
  - Myalgia [None]
  - Heart rate irregular [None]
  - Glomerular filtration rate decreased [None]
  - Blood potassium decreased [None]
  - Vision blurred [None]
  - Atrial fibrillation [None]
  - Gait inability [None]

NARRATIVE: CASE EVENT DATE: 201612
